FAERS Safety Report 6001186-8 (Version None)
Quarter: 2008Q4

REPORT INFORMATION
  Report Type: 
  Country: None (occurrence: None)
  Receive Date: 20081215
  Receipt Date: 20081202
  Transmission Date: 20090506
  Serious: Yes (Hospitalization)
  Sender: FDA-Public Use
  Company Number: US-ELI_LILLY_AND_COMPANY-US200812001583

PATIENT
  Age: 77 Year
  Sex: Male

DRUGS (3)
  1. CYMBALTA [Suspect]
     Indication: DIABETIC NEUROPATHY
     Dosage: 30 MG, UNK
     Dates: start: 20080901
  2. ADVAIR DISKUS 250/50 [Concomitant]
  3. ORAL BLOOD GLUCOSE LOWERING DRUGS [Concomitant]

REACTIONS (2)
  - CARDIAC FAILURE CONGESTIVE [None]
  - CONSTIPATION [None]
